FAERS Safety Report 4413292-X (Version None)
Quarter: 2004Q3

REPORT INFORMATION
  Report Type: 
  Country: None (occurrence: None)
  Receive Date: 20040729
  Receipt Date: 20040719
  Transmission Date: 20050211
  Serious: Yes (Other)
  Sender: FDA-Public Use
  Company Number: 2004224395US

PATIENT
  Sex: Female

DRUGS (7)
  1. PROVERA [Suspect]
  2. PROMETRIUM [Suspect]
  3. CRINONE [Suspect]
  4. PREMARIN [Suspect]
  5. ESTRADIOL [Suspect]
  6. ESTRONE [Suspect]
  7. ESTRIOL(ESTRIOL) [Suspect]

REACTIONS (1)
  - BREAST CANCER STAGE II [None]
